FAERS Safety Report 6550222-9 (Version None)
Quarter: 2010Q1

REPORT INFORMATION
  Report Type: 
  Country: None (occurrence: None)
  Receive Date: 20100125
  Receipt Date: 20100113
  Transmission Date: 20100710
  Serious: No
  Sender: FDA-Public Use
  Company Number: BR-ELI_LILLY_AND_COMPANY-BR200912004844

PATIENT
  Sex: Female

DRUGS (3)
  1. FORTEO [Suspect]
     Indication: OSTEOPOROSIS
     Dosage: UNK, UNKNOWN
     Route: 065
     Dates: start: 20091001
  2. VITAMINS NOS [Concomitant]
     Dosage: UNK, UNKNOWN
     Route: 065
  3. CALCIUM + VITAMIN D [Concomitant]
     Indication: OSTEOPOROSIS
     Dosage: UNK, UNKNOWN
     Route: 065

REACTIONS (7)
  - ABDOMINAL DISTENSION [None]
  - DRUG INEFFECTIVE [None]
  - FALL [None]
  - INJECTION SITE ERYTHEMA [None]
  - PAIN [None]
  - SKIN DISORDER [None]
  - URINARY TRACT INFECTION [None]
